FAERS Safety Report 11879936 (Version 2)
Quarter: 2016Q1

REPORT INFORMATION
  Report Type: Spontaneous
  Country: DE (occurrence: DE)
  Receive Date: 20151230
  Receipt Date: 20160118
  Transmission Date: 20160526
  Serious: Yes (Hospitalization)
  Sender: FDA-Public Use
  Company Number: DE-BAUSCH-BL-2015-030975

PATIENT
  Age: 77 Year
  Sex: Male

DRUGS (10)
  1. AMIOGAMMA [Concomitant]
     Indication: PRODUCT USED FOR UNKNOWN INDICATION
  2. MONTELUKAST ZENTIVA [Concomitant]
     Indication: PRODUCT USED FOR UNKNOWN INDICATION
     Dosage: AS NECESSARY
  3. ASPIRIN PROTECT [Concomitant]
     Active Substance: ASPIRIN
     Indication: PRODUCT USED FOR UNKNOWN INDICATION
  4. BIOLECTRA MAGNESIUM [Concomitant]
     Indication: PRODUCT USED FOR UNKNOWN INDICATION
  5. MOVICOL [Concomitant]
     Active Substance: POLYETHYLENE GLYCOL 3350\POTASSIUM CHLORIDE\SODIUM BICARBONATE\SODIUM CHLORIDE
     Indication: PRODUCT USED FOR UNKNOWN INDICATION
     Dates: start: 20151115
  6. FORMOTOP 6 MIKROGRAMM NOVOLIZER [Concomitant]
     Indication: PRODUCT USED FOR UNKNOWN INDICATION
  7. HYDROCHLOROTHIAZIDE. [Concomitant]
     Active Substance: HYDROCHLOROTHIAZIDE
     Indication: PRODUCT USED FOR UNKNOWN INDICATION
  8. PSYLLIUM HUSK [Concomitant]
     Active Substance: PSYLLIUM HUSK
     Indication: PRODUCT USED FOR UNKNOWN INDICATION
     Dosage: ONE TEASPOON DAILY
     Dates: start: 20151115
  9. ZYCLARA [Suspect]
     Active Substance: IMIQUIMOD
     Indication: ACTINIC KERATOSIS
     Route: 061
     Dates: start: 20151207, end: 20151218
  10. CANDESARTAN [Concomitant]
     Active Substance: CANDESARTAN
     Indication: PRODUCT USED FOR UNKNOWN INDICATION

REACTIONS (13)
  - Influenza like illness [Recovering/Resolving]
  - Poor quality sleep [Recovering/Resolving]
  - Chills [Recovering/Resolving]
  - Fatigue [Recovering/Resolving]
  - Application site pruritus [Recovering/Resolving]
  - Dizziness [Recovering/Resolving]
  - C-reactive protein increased [Recovering/Resolving]
  - Pyrexia [Recovering/Resolving]
  - Decreased appetite [Recovering/Resolving]
  - Myalgia [Recovering/Resolving]
  - Streptococcal infection [Recovering/Resolving]
  - Dry mouth [Recovering/Resolving]
  - Application site pain [Recovering/Resolving]

NARRATIVE: CASE EVENT DATE: 201512
